FAERS Safety Report 7383441-2 (Version None)
Quarter: 2011Q1

REPORT INFORMATION
  Report Type: 
  Country: None (occurrence: None)
  Receive Date: 20110328
  Receipt Date: 20110328
  Transmission Date: 20110831
  Serious: Yes (Other)
  Sender: FDA-Public Use
  Company Number: None

PATIENT
  Sex: Female
  Weight: 56.8 kg

DRUGS (2)
  1. OMNIPAQUE 350 [Suspect]
     Indication: ABDOMEN SCAN
     Dosage: 100 ML PO
     Route: 048
  2. OMNIPAQUE 350 [Suspect]
     Indication: COMPUTERISED TOMOGRAM
     Dosage: 100 ML PO
     Route: 048

REACTIONS (2)
  - URTICARIA [None]
  - CONTRAST MEDIA REACTION [None]
